FAERS Safety Report 15343549 (Version 1)
Quarter: 2018Q3

REPORT INFORMATION
  Report Type: Spontaneous
  Country: US (occurrence: US)
  Receive Date: 20180903
  Receipt Date: 20180903
  Transmission Date: 20181010
  Serious: No
  Sender: FDA-Public Use
  Company Number: US-PFIZER INC-2018352567

PATIENT
  Age: 83 Year
  Sex: Female

DRUGS (2)
  1. LYRICA [Suspect]
     Active Substance: PREGABALIN
     Dosage: 1 DF, DAILY, (ONCE A DAY FOR ABOUT THREE WEEKS)
  2. LYRICA [Suspect]
     Active Substance: PREGABALIN
     Dosage: 3 DF, DAILY, (3 DOSES PER DAY)

REACTIONS (3)
  - Intentional product misuse [Unknown]
  - Malaise [Unknown]
  - Pain [Unknown]
